FAERS Safety Report 8428085-6 (Version None)
Quarter: 2012Q2

REPORT INFORMATION
  Report Type: 
  Country: None (occurrence: None)
  Receive Date: 20120611
  Receipt Date: 20120228
  Transmission Date: 20120825
  Serious: No
  Sender: FDA-Public Use
  Company Number: US-ASTRAZENECA-2012SE13652

PATIENT
  Sex: Female
  Weight: 60.3 kg

DRUGS (3)
  1. RHINOCORT [Suspect]
     Indication: EAR CONGESTION
     Dosage: 1-2 SPRAYS QD
     Route: 045
  2. RHINOCORT [Suspect]
     Indication: HEADACHE
     Dosage: 1-2 SPRAYS QD
     Route: 045
  3. XYZAL [Concomitant]

REACTIONS (5)
  - DIZZINESS [None]
  - OFF LABEL USE [None]
  - DRUG DOSE OMISSION [None]
  - NASAL CONGESTION [None]
  - LACRIMATION INCREASED [None]
